FAERS Safety Report 8460341-8 (Version None)
Quarter: 2012Q2

REPORT INFORMATION
  Report Type: 
  Country: None (occurrence: None)
  Receive Date: 20120622
  Receipt Date: 20120607
  Transmission Date: 20120825
  Serious: Yes (Hospitalization, Other)
  Sender: FDA-Public Use
  Company Number: PE-ASTELLAS-2011US006926

PATIENT
  Sex: Male
  Weight: 61 kg

DRUGS (2)
  1. ERLOTINIB HYDROCHLORIDE [Suspect]
     Indication: HEPATIC NEOPLASM MALIGNANT
     Dosage: UNK
     Route: 048
     Dates: start: 20110926
  2. SORAFENIB [Suspect]
     Indication: HEPATIC NEOPLASM MALIGNANT
     Dosage: 800 MG, UID/QD
     Route: 048
     Dates: start: 20110926

REACTIONS (10)
  - URINARY TRACT INFECTION [None]
  - CRANIOCEREBRAL INJURY [None]
  - LACERATION [None]
  - HYPOALBUMINAEMIA [None]
  - ANAEMIA OF CHRONIC DISEASE [None]
  - CONTUSION [None]
  - HYPONATRAEMIA [None]
  - FALL [None]
  - OFF LABEL USE [None]
  - HYPOKALAEMIA [None]
